FAERS Safety Report 23053319 (Version 1)
Quarter: 2023Q4

REPORT INFORMATION
  Report Type: Spontaneous
  Country: US (occurrence: US)
  Receive Date: 20231011
  Receipt Date: 20231011
  Transmission Date: 20240110
  Serious: No
  Sender: FDA-Public Use
  Company Number: US-ELI_LILLY_AND_COMPANY-US202310002627

PATIENT
  Age: 75 Year
  Sex: Male

DRUGS (3)
  1. EMGALITY [Suspect]
     Active Substance: GALCANEZUMAB-GNLM
     Indication: Product used for unknown indication
     Dosage: 120 MG, UNKNOWN
     Route: 065
     Dates: start: 20230801
  2. EMGALITY [Suspect]
     Active Substance: GALCANEZUMAB-GNLM
     Dosage: 120 MG, UNKNOWN
     Route: 065
  3. FERROUS SULFATE [Suspect]
     Active Substance: FERROUS SULFATE
     Indication: Anaemia
     Dosage: 325 MG, UNKNOWN
     Route: 065
     Dates: start: 20230901

REACTIONS (2)
  - Rash pruritic [Recovered/Resolved]
  - Urticaria [Recovered/Resolved]

NARRATIVE: CASE EVENT DATE: 20230901
